FAERS Safety Report 6193255-7 (Version None)
Quarter: 2009Q2

REPORT INFORMATION
  Report Type: 
  Country: None (occurrence: None)
  Receive Date: 20090518
  Receipt Date: 20090508
  Transmission Date: 20091009
  Serious: Yes (Hospitalization)
  Sender: FDA-Public Use
  Company Number: A0784461A

PATIENT
  Age: 50 Year
  Sex: Male
  Weight: 115 kg

DRUGS (8)
  1. AVANDIA [Suspect]
     Indication: DIABETES MELLITUS
     Dosage: 2MG TWICE PER DAY
     Route: 048
     Dates: start: 20070322, end: 20070425
  2. METFORMIN HCL [Concomitant]
  3. PRANDIN [Concomitant]
  4. PRANDIN [Concomitant]
  5. DIABETA [Concomitant]
  6. JANUVIA [Concomitant]
  7. TOPROL-XL [Concomitant]
  8. CRESTOR [Concomitant]

REACTIONS (3)
  - CORONARY ARTERY DISEASE [None]
  - MYOCARDIAL INFARCTION [None]
  - QUALITY OF LIFE DECREASED [None]
